FAERS Safety Report 4788404-9 (Version None)
Quarter: 2005Q4

REPORT INFORMATION
  Report Type: 
  Country: None (occurrence: None)
  Receive Date: 20051003
  Receipt Date: 20050922
  Transmission Date: 20060501
  Serious: Yes (Congenital Anomaly)
  Sender: FDA-Public Use
  Company Number: 2005100334

PATIENT
  Age: 17 Year
  Sex: Male
  Weight: 65.7716 kg

DRUGS (3)
  1. ZOLOFT [Suspect]
     Indication: DEPRESSION
     Dosage: 75 MG (1 IN 1 D), ORAL
     Route: 048
     Dates: start: 20050201, end: 20050901
  2. ZOLOFT [Suspect]
     Indication: OBSESSIVE-COMPULSIVE DISORDER
     Dosage: 75 MG (1 IN 1 D), ORAL
     Route: 048
     Dates: start: 20050201, end: 20050901
  3. ZOLOFT [Suspect]
     Indication: PANIC ATTACK
     Dosage: 75 MG (1 IN 1 D), ORAL
     Route: 048
     Dates: start: 20050201, end: 20050901

REACTIONS (5)
  - BUNDLE BRANCH BLOCK RIGHT [None]
  - CHEST INJURY [None]
  - PAIN [None]
  - PANIC ATTACK [None]
  - STERNAL FRACTURE [None]
